FAERS Safety Report 7357660-5 (Version None)
Quarter: 2011Q1

REPORT INFORMATION
  Report Type: 
  Country: None (occurrence: None)
  Receive Date: 20110317
  Receipt Date: 20110307
  Transmission Date: 20110831
  Serious: Yes (Hospitalization)
  Sender: FDA-Public Use
  Company Number: US-ELI_LILLY_AND_COMPANY-US201103002431

PATIENT
  Sex: Female

DRUGS (5)
  1. DECADRON [Concomitant]
  2. ALIMTA [Suspect]
     Indication: PANCREATIC CARCINOMA
     Dosage: 935 MG, UNK
     Route: 065
     Dates: start: 20110201
  3. MAGNESIUM [Concomitant]
  4. ALOXI [Concomitant]
  5. POTASSIUM [Concomitant]

REACTIONS (2)
  - HOSPITALISATION [None]
  - OFF LABEL USE [None]
